FAERS Safety Report 5339003-1 (Version None)
Quarter: 2007Q2

REPORT INFORMATION
  Report Type: 
  Country: None (occurrence: None)
  Receive Date: 20070403
  Receipt Date: 20060222
  Transmission Date: 20071010
  Serious: Yes (Hospitalization)
  Sender: FDA-Public Use
  Company Number: WAES 0602USA05237

PATIENT

DRUGS (1)
  1. CANCIDAS [Suspect]
     Dosage: SEE IMAGE
     Route: 042

REACTIONS (1)
  - BLOOD BILIRUBIN INCREASED [None]
